FAERS Safety Report 4482063-0 (Version None)
Quarter: 2004Q3

REPORT INFORMATION
  Report Type: 
  Country: None (occurrence: None)
  Receive Date: 20040921
  Receipt Date: 20030811
  Transmission Date: 20050211
  Serious: Yes (Hospitalization)
  Sender: FDA-Public Use
  Company Number: 163-20785-03060801(1)

PATIENT
  Age: 77 Year
  Sex: Male

DRUGS (2)
  1. THALOMID [Suspect]
     Indication: MULTIPLE MYELOMA
     Dosage: 200 MG, DAILY, ORAL
     Route: 048
     Dates: start: 20020326
  2. DILANTIN [Concomitant]

REACTIONS (4)
  - BALANCE DISORDER [None]
  - GRAND MAL CONVULSION [None]
  - NERVE INJURY [None]
  - NEUROPATHY PERIPHERAL [None]
